FAERS Safety Report 7395053-5 (Version None)
Quarter: 2011Q2

REPORT INFORMATION
  Report Type: 
  Country: None (occurrence: None)
  Receive Date: 20110405
  Receipt Date: 20110328
  Transmission Date: 20111010
  Serious: Yes (Hospitalization)
  Sender: FDA-Public Use
  Company Number: AU-MERCK-1103USA03630

PATIENT
  Age: 74 Year
  Sex: Male
  Weight: 70 kg

DRUGS (5)
  1. ZOLINZA [Suspect]
     Route: 048
     Dates: start: 20110125, end: 20110210
  2. LIPITOR [Concomitant]
     Route: 065
  3. ALLOPURINOL [Concomitant]
     Route: 065
  4. ZOLINZA [Suspect]
     Indication: MYCOSIS FUNGOIDES
     Route: 048
     Dates: start: 20101223, end: 20110106
  5. BACTRIM [Concomitant]
     Route: 065

REACTIONS (3)
  - NAUSEA [None]
  - HYPERCALCAEMIA [None]
  - DEHYDRATION [None]
